FAERS Safety Report 5068852-2 (Version None)
Quarter: 2006Q3

REPORT INFORMATION
  Report Type: 
  Country: None (occurrence: None)
  Receive Date: 20060802
  Receipt Date: 20060504
  Transmission Date: 20061208
  Serious: No
  Sender: FDA-Public Use
  Company Number: US-BRISTOL-MYERS SQUIBB COMPANY-13366430

PATIENT
  Age: 85 Year
  Sex: Female
  Weight: 51 kg

DRUGS (3)
  1. COUMADIN [Suspect]
     Indication: HEART VALVE REPLACEMENT
     Dates: start: 20060101
  2. SYNTHROID [Concomitant]
  3. FOSAMAX [Concomitant]

REACTIONS (1)
  - DIARRHOEA [None]
